FAERS Safety Report 9677883 (Version 1)
Quarter: 2013Q4

REPORT INFORMATION
  Report Type: Spontaneous
  Country: US (occurrence: US)
  Receive Date: 20131108
  Receipt Date: 20131108
  Transmission Date: 20140711
  Serious: Yes (Other)
  Sender: FDA-Public Use
  Company Number: US-SA-2013SA114203

PATIENT
  Sex: Male

DRUGS (1)
  1. JEVTANA [Suspect]
     Route: 065

REACTIONS (2)
  - Cardiac disorder [Unknown]
  - Device malfunction [Unknown]
